FAERS Safety Report 8246281-8 (Version None)
Quarter: 2012Q1

REPORT INFORMATION
  Report Type: 
  Country: None (occurrence: None)
  Receive Date: 20120330
  Receipt Date: 20120326
  Transmission Date: 20120608
  Serious: Yes (Other)
  Sender: FDA-Public Use
  Company Number: AU-BAYER-2012-028742

PATIENT
  Age: 64 Year
  Sex: Female

DRUGS (1)
  1. INTERFERON BETA-1B [Suspect]
     Indication: MULTIPLE SCLEROSIS
     Dosage: 250 MCG/ML, UNK
     Route: 058
     Dates: start: 19940601

REACTIONS (2)
  - BLADDER DISORDER [None]
  - UTERINE PROLAPSE [None]
